FAERS Safety Report 23896969 (Version 2)
Quarter: 2025Q1

REPORT INFORMATION
  Report Type: Spontaneous
  Country: FR (occurrence: FR)
  Receive Date: 20240524
  Receipt Date: 20250113
  Transmission Date: 20250409
  Serious: Yes (Life-Threatening, Disabling, Other)
  Sender: MYLAN
  Company Number: FR-BRISTOL-MYERS SQUIBB COMPANY-2024-074129

PATIENT
  Age: 33 Year
  Sex: Female
  Weight: 86 kg

DRUGS (28)
  1. LYRICA [Suspect]
     Active Substance: PREGABALIN
     Indication: Facial pain
     Dosage: 600 MILLIGRAM, BID
     Route: 048
  2. LYRICA [Suspect]
     Active Substance: PREGABALIN
     Dosage: 600 MILLIGRAM, BID
     Route: 048
  3. LYRICA [Suspect]
     Active Substance: PREGABALIN
     Dosage: 600 MILLIGRAM, BID
     Route: 048
  4. LYRICA [Suspect]
     Active Substance: PREGABALIN
     Dosage: 600 MILLIGRAM, BID
     Route: 048
  5. RIVOTRIL [Suspect]
     Active Substance: CLONAZEPAM
     Indication: Facial pain
     Dosage: UNK, QD
     Route: 048
  6. RIVOTRIL [Suspect]
     Active Substance: CLONAZEPAM
     Dosage: UNK, QD
     Route: 048
  7. RIVOTRIL [Suspect]
     Active Substance: CLONAZEPAM
     Dosage: UNK, QD
     Route: 048
  8. RIVOTRIL [Suspect]
     Active Substance: CLONAZEPAM
     Dosage: UNK, QD
     Route: 048
  9. ELIQUIS [Suspect]
     Active Substance: APIXABAN
     Indication: Thrombosis
     Dosage: 5 MILLIGRAM, BID (0.5 DAY)
     Route: 065
  10. ELIQUIS [Suspect]
     Active Substance: APIXABAN
     Indication: Phlebitis
     Dosage: 5 MILLIGRAM, BID (0.5 DAY)
     Route: 065
  11. ELIQUIS [Suspect]
     Active Substance: APIXABAN
     Dosage: 5 MILLIGRAM, BID (0.5 DAY)
     Route: 065
  12. ELIQUIS [Suspect]
     Active Substance: APIXABAN
     Dosage: 5 MILLIGRAM, BID (0.5 DAY)
     Route: 065
  13. ESOMEPRAZOLE [Suspect]
     Active Substance: ESOMEPRAZOLE
     Indication: Gastrointestinal disorder
     Dosage: 40 MILLIGRAM, QD, DAILY
     Route: 048
  14. ESOMEPRAZOLE [Suspect]
     Active Substance: ESOMEPRAZOLE
     Dosage: 40 MILLIGRAM, QD, DAILY
     Route: 048
  15. ESOMEPRAZOLE [Suspect]
     Active Substance: ESOMEPRAZOLE
     Dosage: 40 MILLIGRAM, QD, DAILY
     Route: 048
  16. ESOMEPRAZOLE [Suspect]
     Active Substance: ESOMEPRAZOLE
     Dosage: 40 MILLIGRAM, QD, DAILY
     Route: 048
  17. ASTRAZENECA COVID-19 VACCINE [Suspect]
     Active Substance: AZD-1222
     Indication: Product used for unknown indication
     Route: 030
  18. ASTRAZENECA COVID-19 VACCINE [Suspect]
     Active Substance: AZD-1222
     Route: 030
  19. ASTRAZENECA COVID-19 VACCINE [Suspect]
     Active Substance: AZD-1222
     Route: 030
  20. ASTRAZENECA COVID-19 VACCINE [Suspect]
     Active Substance: AZD-1222
     Route: 030
  21. TRAMADOL [Concomitant]
     Active Substance: TRAMADOL
     Indication: Pain
     Dosage: 200 MILLIGRAM, BID
     Route: 048
  22. TRAMADOL [Concomitant]
     Active Substance: TRAMADOL
     Dosage: 200 MILLIGRAM, BID
     Route: 048
  23. TRAMADOL [Concomitant]
     Active Substance: TRAMADOL
     Dosage: 200 MILLIGRAM, BID
     Route: 048
  24. TRAMADOL [Concomitant]
     Active Substance: TRAMADOL
     Dosage: 200 MILLIGRAM, BID
     Route: 048
  25. DESOBEL [Concomitant]
     Indication: Menstruation delayed
     Dosage: 30 MILLIGRAM, QD
     Route: 048
  26. DESOBEL [Concomitant]
     Indication: Ill-defined disorder
     Dosage: 30 MILLIGRAM, QD
     Route: 048
  27. Temesta [Concomitant]
     Indication: Insomnia
     Dosage: UNK UNK, QD, AT BED TIME, FREQUENCY: HS
     Route: 048
  28. Temesta [Concomitant]
     Dosage: UNK UNK, QD, AT BED TIME, FREQUENCY: HS
     Route: 048

REACTIONS (6)
  - Phlebitis [Not Recovered/Not Resolved]
  - Thrombosis [Not Recovered/Not Resolved]
  - Staphylococcal infection [Unknown]
  - Staphylococcal skin infection [Unknown]
  - Intervertebral disc protrusion [Unknown]
  - Arthropathy [Unknown]

NARRATIVE: CASE EVENT DATE: 20231012
